FAERS Safety Report 7131852-2 (Version None)
Quarter: 2010Q4

REPORT INFORMATION
  Report Type: 
  Country: None (occurrence: None)
  Receive Date: 20101202
  Receipt Date: 20101122
  Transmission Date: 20110411
  Serious: No
  Sender: FDA-Public Use
  Company Number: US-BIOGENIDEC-2010BI041728

PATIENT
  Sex: Male

DRUGS (1)
  1. TYSABRI [Suspect]
     Indication: MULTIPLE SCLEROSIS
     Route: 042
     Dates: start: 20070101, end: 20091201

REACTIONS (13)
  - ASTHENIA [None]
  - AURA [None]
  - EYE PAIN [None]
  - FEELING ABNORMAL [None]
  - INSOMNIA [None]
  - LICHEN PLANUS [None]
  - MUSCULAR WEAKNESS [None]
  - NEURALGIA [None]
  - ORAL PAIN [None]
  - PAIN [None]
  - PARAESTHESIA [None]
  - PRURITUS [None]
  - SINUS DISORDER [None]
